FAERS Safety Report 24150410 (Version 1)
Quarter: 2024Q3

REPORT INFORMATION
  Report Type: Report from Study
  Country: US (occurrence: None)
  Receive Date: 20240730
  Receipt Date: 20240730
  Transmission Date: 20241016
  Serious: Yes (Hospitalization, Other)
  Sender: ASTRAZENECA
  Company Number: 2021A350266

PATIENT
  Age: 24488 Day
  Sex: Male
  Weight: 50.8 kg

DRUGS (13)
  1. SYMBICORT [Suspect]
     Active Substance: BUDESONIDE\FORMOTEROL FUMARATE DIHYDRATE
     Indication: Chronic obstructive pulmonary disease
     Dosage: 160/4.5MCG 2 PUFFS, TWO TIMES A DAY
     Route: 055
  2. SYMBICORT [Suspect]
     Active Substance: BUDESONIDE\FORMOTEROL FUMARATE DIHYDRATE
     Indication: Emphysema
     Dosage: 160/4.5MCG 2 PUFFS, TWO TIMES A DAY
     Route: 055
  3. SYMBICORT [Suspect]
     Active Substance: BUDESONIDE\FORMOTEROL FUMARATE DIHYDRATE
     Indication: Chronic obstructive pulmonary disease
     Dosage: UNKNOWN UNKNOWN
     Route: 055
     Dates: start: 20111212
  4. SYMBICORT [Suspect]
     Active Substance: BUDESONIDE\FORMOTEROL FUMARATE DIHYDRATE
     Indication: Emphysema
     Dosage: UNKNOWN UNKNOWN
     Route: 055
     Dates: start: 20111212
  5. CEPHALEXIN [Concomitant]
     Active Substance: CEPHALEXIN
  6. DOCUSATE SODIUM [Concomitant]
     Active Substance: DOCUSATE SODIUM
  7. ACETAMINOPHEN\CODEINE PHOSPHATE [Concomitant]
     Active Substance: ACETAMINOPHEN\CODEINE PHOSPHATE
     Dosage: 1 TABLET BY MOUTH EVERY 6 HOURS AS NEEDED FOR SEVERE PAIN
  8. ALBUTEROL [Concomitant]
     Active Substance: ALBUTEROL
     Dosage: 1 NEBULE
  9. ALBUTEROL SULFATE [Concomitant]
     Active Substance: ALBUTEROL SULFATE
     Dosage: 2 PUFF
  10. BUDESONIDE\FORMOTEROL [Concomitant]
     Active Substance: BUDESONIDE\FORMOTEROL
     Dosage: INHALE 2 PUFFS ORALLY 2 TIMES A DAY SHAKE WELL BEFORE USING. RINSE MOUTH AFTER USE
     Route: 055
  11. IBUPROFEN [Concomitant]
     Active Substance: IBUPROFEN
  12. PREDNISONE [Concomitant]
     Active Substance: PREDNISONE
     Dosage: 20 MG BY MOUTH 1 TIME PER DAY
  13. SILDENAFIL [Concomitant]
     Active Substance: SILDENAFIL
     Dosage: TABLET (50 MG) BY MOUTH 1 TIME A DAY AS NEEDED FOR OTHER (SPECIFY} (30-60 MINUTES PRIOR TO SEXAL ...

REACTIONS (5)
  - Bladder cancer [Unknown]
  - Escherichia urinary tract infection [Unknown]
  - Haematuria [Unknown]
  - Essential hypertension [Unknown]
  - Product dose omission issue [Unknown]

NARRATIVE: CASE EVENT DATE: 20201113
